FAERS Safety Report 8277596-5 (Version None)
Quarter: 2012Q2

REPORT INFORMATION
  Report Type: 
  Country: None (occurrence: None)
  Receive Date: 20120412
  Receipt Date: 20120409
  Transmission Date: 20120825
  Serious: Yes (Other)
  Sender: FDA-Public Use
  Company Number: US-TEVA-332956USA

PATIENT
  Sex: Female
  Weight: 68.1 kg

DRUGS (7)
  1. TRAMADOL HCL [Concomitant]
     Indication: PAIN
     Dosage: 50 MILLIGRAM;
     Route: 048
     Dates: start: 20030101
  2. HYDROCODONE [Concomitant]
     Indication: UPPER LIMB FRACTURE
  3. ALLERGY MEDICATION [Concomitant]
     Route: 048
  4. ALPRAZOLAM [Concomitant]
     Indication: ANXIETY
     Dosage: 1 MILLIGRAM;
     Route: 048
  5. PROVIGIL [Suspect]
     Indication: FATIGUE
     Dosage: 200 MILLIGRAM;
     Route: 048
     Dates: start: 20040101
  6. CLONAZEPAM [Concomitant]
     Indication: ANXIETY
     Route: 048
  7. HYDROCODONE [Concomitant]
     Indication: LOWER LIMB FRACTURE
     Route: 048
     Dates: start: 20100101, end: 20110101

REACTIONS (2)
  - LOWER LIMB FRACTURE [None]
  - OFF LABEL USE [None]
